FAERS Safety Report 5484200-8 (Version None)
Quarter: 2007Q4

REPORT INFORMATION
  Report Type: 
  Country: None (occurrence: None)
  Receive Date: 20071009
  Receipt Date: 20070921
  Transmission Date: 20080405
  Serious: Yes (Other)
  Sender: FDA-Public Use
  Company Number: ENT 2007-0168

PATIENT
  Age: 65 Year
  Sex: Male

DRUGS (3)
  1. COMTAN [Suspect]
     Indication: PARKINSON'S DISEASE
     Dosage: 200 MG (100 MG, 2 IN 1 D) ORAL, 300 MG (100 MG, 3 IN 1N 1 D) ORAL
     Route: 048
     Dates: start: 20070710, end: 20070813
  2. COMTAN [Suspect]
     Indication: PARKINSON'S DISEASE
     Dosage: 200 MG (100 MG, 2 IN 1 D) ORAL, 300 MG (100 MG, 3 IN 1N 1 D) ORAL
     Route: 048
     Dates: start: 20070814, end: 20070904
  3. MENESIT [Concomitant]

REACTIONS (3)
  - DIARRHOEA [None]
  - HYPOKALAEMIA [None]
  - NASOPHARYNGITIS [None]
